FAERS Safety Report 9216075 (Version 2)
Quarter: 2013Q2

REPORT INFORMATION
  Report Type: Spontaneous
  Country: IT (occurrence: None)
  Receive Date: 20130402
  Receipt Date: 20130410
  Transmission Date: 20140414
  Serious: Yes (Other)
  Sender: FDA-Public Use
  Company Number: 1654883

PATIENT
  Age: 73 Year
  Sex: Male

DRUGS (1)
  1. DOBUTAMINE HYDROCHLORIDE [Suspect]
     Indication: STRESS ECHOCARDIOGRAM
     Dosage: 40 MCG/KG/MIN, UNKNOWN, INTRAVENOUS DRIP
     Route: 041

REACTIONS (2)
  - Stress cardiomyopathy [None]
  - Coronary artery disease [None]
